FAERS Safety Report 8494934-9 (Version None)
Quarter: 2012Q3

REPORT INFORMATION
  Report Type: 
  Country: None (occurrence: None)
  Receive Date: 20120709
  Receipt Date: 20120704
  Transmission Date: 20120928
  Serious: Yes (Death)
  Sender: FDA-Public Use
  Company Number: CN-PFIZER INC-2012160949

PATIENT
  Age: 62 Year
  Sex: Male

DRUGS (1)
  1. SUTENT [Suspect]
     Indication: GASTROINTESTINAL STROMAL TUMOUR
     Dosage: UNK

REACTIONS (2)
  - TUMOUR HAEMORRHAGE [None]
  - ORGAN FAILURE [None]
